FAERS Safety Report 23129238 (Version 15)
Quarter: 2025Q1

REPORT INFORMATION
  Report Type: Report from Study
  Country: US (occurrence: US)
  Receive Date: 20231031
  Receipt Date: 20250217
  Transmission Date: 20250408
  Serious: Yes (Other)
  Sender: NOVARTIS
  Company Number: US-002147023-NVSC2023US232951

PATIENT
  Age: 53 Year
  Sex: Female

DRUGS (1)
  1. KESIMPTA [Suspect]
     Active Substance: OFATUMUMAB
     Indication: Multiple sclerosis
     Dosage: 20 MG, QMO
     Route: 058
     Dates: start: 20230820

REACTIONS (14)
  - Suicidal ideation [Unknown]
  - Secondary progressive multiple sclerosis [Unknown]
  - Hypothyroidism [Unknown]
  - Urinary tract infection [Unknown]
  - Fear of death [Unknown]
  - Hepatic steatosis [Unknown]
  - Sinusitis [Unknown]
  - Bladder discomfort [Unknown]
  - Abdominal discomfort [Unknown]
  - Cognitive disorder [Unknown]
  - Osteoporosis [Unknown]
  - Vitamin B12 deficiency [Unknown]
  - Immunoglobulins decreased [Unknown]
  - Lymphocyte count abnormal [Unknown]

NARRATIVE: CASE EVENT DATE: 20230921
